FAERS Safety Report 7259799-1 (Version None)
Quarter: 2011Q1

REPORT INFORMATION
  Report Type: 
  Country: None (occurrence: None)
  Receive Date: 20110130
  Receipt Date: 20100903
  Transmission Date: 20110831
  Serious: No
  Sender: FDA-Public Use
  Company Number: US-ABBOTT-10P-163-0668921-00

PATIENT
  Age: 41 Year
  Sex: Female

DRUGS (1)
  1. HUMIRA [Suspect]
     Indication: ANKYLOSING SPONDYLITIS
     Dosage: ON TUESDAY
     Dates: start: 20100831

REACTIONS (4)
  - FATIGUE [None]
  - VAGINAL HAEMORRHAGE [None]
  - ASTHENIA [None]
  - FEELING ABNORMAL [None]
